FAERS Safety Report 9654873 (Version 2)
Quarter: 2013Q4

REPORT INFORMATION
  Report Type: Report from Study
  Country: IL (occurrence: IL)
  Receive Date: 20131029
  Receipt Date: 20131106
  Transmission Date: 20140711
  Serious: Yes (Death)
  Sender: FDA-Public Use
  Company Number: IL-ROCHE-1295183

PATIENT
  Age: 43 Year
  Sex: Female

DRUGS (1)
  1. PERTUZUMAB [Suspect]
     Indication: BREAST CANCER METASTATIC
     Dosage: LAST DOSE PRIOR TO SAE 06/OCT/2013
     Route: 042
     Dates: start: 20130310, end: 20131006

REACTIONS (1)
  - Disease progression [Fatal]
